FAERS Safety Report 17377660 (Version 1)
Quarter: 2020Q1

REPORT INFORMATION
  Report Type: Report from Study
  Country: TW (occurrence: TW)
  Receive Date: 20200206
  Receipt Date: 20200206
  Transmission Date: 20200409
  Serious: Yes (Other)
  Sender: FDA-Public Use
  Company Number: TW-ROCHE-2536072

PATIENT

DRUGS (3)
  1. DACLATASVIR. [Suspect]
     Active Substance: DACLATASVIR
     Indication: CHRONIC HEPATITIS C
     Route: 065
  2. RIBAVIRIN. [Suspect]
     Active Substance: RIBAVIRIN
     Indication: CHRONIC HEPATITIS C
     Dosage: 1000 OR 1200 MG WEIGHT-BASED
     Route: 065
  3. SOFOSBUVIR [Suspect]
     Active Substance: SOFOSBUVIR
     Indication: CHRONIC HEPATITIS C
     Route: 065

REACTIONS (10)
  - Oedema peripheral [Unknown]
  - Anaemia [Unknown]
  - Ascites [Unknown]
  - Blood creatinine increased [Unknown]
  - Insomnia [Unknown]
  - Headache [Unknown]
  - Alanine aminotransferase decreased [Unknown]
  - Rash [Unknown]
  - Asthenia [Unknown]
  - Pruritus [Unknown]
